FAERS Safety Report 9405650 (Version 2)
Quarter: 2013Q3

REPORT INFORMATION
  Report Type: Spontaneous
  Country: US (occurrence: US)
  Receive Date: 20130717
  Receipt Date: 20130814
  Transmission Date: 20140515
  Serious: Yes (Other)
  Sender: FDA-Public Use
  Company Number: CHPA2013US011125

PATIENT
  Sex: Male

DRUGS (5)
  1. EX-LAX REG STR LAX PILLS SENNA [Suspect]
     Indication: CONSTIPATION
     Dosage: 2 DF, BID
     Route: 048
  2. EX-LAX MAX STR LAX PILLS SENNA [Suspect]
     Indication: CONSTIPATION
     Dosage: 2 DF, BID
     Route: 048
  3. EX-LAX ^NOVARTIS^ [Concomitant]
     Indication: CONSTIPATION
     Dosage: 1 TO 2 DF, UNK
     Route: 048
     Dates: start: 2005
  4. NITROGLYCERIN [Concomitant]
     Indication: MYOCARDIAL INFARCTION
     Dosage: UNK, PRN
     Dates: start: 1993
  5. ANTIHYPERTENSIVES [Concomitant]
     Indication: HYPERTENSION

REACTIONS (3)
  - Blood cholesterol increased [Recovered/Resolved]
  - Constipation [Not Recovered/Not Resolved]
  - Drug ineffective [Unknown]
